FAERS Safety Report 9190647 (Version 2)
Quarter: 2013Q1

REPORT INFORMATION
  Report Type: Spontaneous
  Country: DE (occurrence: None)
  Receive Date: 20130322
  Receipt Date: 20130328
  Transmission Date: 20140127
  Serious: Yes (Life-Threatening, Hospitalization, Disabling)
  Sender: FDA-Public Use
  Company Number: AUR-APL-2013-02383

PATIENT
  Age: 65 Year
  Sex: Male
  Weight: 90 kg

DRUGS (7)
  1. METFORMIN (METFORMIN) [Suspect]
     Indication: DIABETES MELLITUS
     Route: 048
     Dates: start: 20120326
  2. HYPERICUM PERFORATUM EXTRACT [Suspect]
     Indication: PRODUCT USED FOR UNKNOWN INDICATION
     Route: 048
  3. CAPTOPRIL (CAPTOPRIL) [Concomitant]
  4. NITRENDIPIN (NITRENDIPINE) [Concomitant]
  5. METOPROLOL (METOPROLOL) [Concomitant]
  6. SIMVASTATIN (SIMVASTATIN) [Concomitant]
  7. JANUVIA (SITAGLIPTIN PHOSPHATE) [Concomitant]

REACTIONS (7)
  - Somnolence [None]
  - Lactic acidosis [None]
  - Acidosis [None]
  - Sepsis [None]
  - Hepatic failure [None]
  - Renal failure [None]
  - Laboratory test abnormal [None]
